FAERS Safety Report 18525610 (Version 5)
Quarter: 2023Q2

REPORT INFORMATION
  Report Type: Other
  Country: CA (occurrence: CA)
  Receive Date: 20201119
  Receipt Date: 20230502
  Transmission Date: 20230721
  Serious: Yes (Hospitalization, Other)
  Sender: FDA-Public Use
  Company Number: CA-CELLTRION INC.-2020CA031605

PATIENT

DRUGS (12)
  1. RITUXIMAB [Suspect]
     Active Substance: RITUXIMAB
     Indication: Paediatric acute-onset neuropsychiatric syndrome
     Dosage: UNK
     Route: 042
  2. RITUXIMAB [Suspect]
     Active Substance: RITUXIMAB
     Indication: Noninfective encephalitis
     Dosage: 1000.0 MG, 1 EVERY 15 DAYS
     Route: 042
  3. RITUXIMAB [Suspect]
     Active Substance: RITUXIMAB
     Indication: Encephalitis autoimmune
     Dosage: 500 MG
     Route: 042
  4. RITUXIMAB [Suspect]
     Active Substance: RITUXIMAB
     Dosage: 1000 MG, 1 EVERY 2 WEEKS
     Route: 041
  5. RITUXIMAB [Suspect]
     Active Substance: RITUXIMAB
     Dosage: UNK
     Route: 042
  6. AMOXICILLIN\CLAVULANIC ACID [Concomitant]
     Active Substance: AMOXICILLIN\CLAVULANIC ACID
     Indication: Product used for unknown indication
     Dosage: 2 EVERY 1 DAY
     Route: 048
  7. BENADRYL [Concomitant]
     Active Substance: DIPHENHYDRAMINE HYDROCHLORIDE
     Indication: Premedication
     Dosage: 50 MG
     Route: 048
  8. ESCITALOPRAM [Concomitant]
     Active Substance: ESCITALOPRAM OXALATE
     Indication: Product used for unknown indication
  9. HYDROXYCHLOROQUINE [Concomitant]
     Active Substance: HYDROXYCHLOROQUINE
     Indication: Product used for unknown indication
     Dosage: 400.0 MG
     Route: 065
  10. RISPERIDONE [Concomitant]
     Active Substance: RISPERIDONE
     Indication: Product used for unknown indication
     Dosage: 2.0 MG
     Route: 048
  11. SOLU-MEDROL [Concomitant]
     Active Substance: METHYLPREDNISOLONE SODIUM SUCCINATE
     Indication: Premedication
     Dosage: 100 MG
     Route: 042
  12. TYLENOL [Concomitant]
     Active Substance: ACETAMINOPHEN
     Indication: Premedication
     Dosage: 650 MG
     Route: 048

REACTIONS (11)
  - Antibody test positive [Unknown]
  - Laboratory test abnormal [Unknown]
  - Obsessive-compulsive disorder [Unknown]
  - Psychotic disorder [Unknown]
  - Tonsillar disorder [Unknown]
  - Condition aggravated [Unknown]
  - Inflammation [Unknown]
  - COVID-19 [Unknown]
  - Disease recurrence [Unknown]
  - Off label use [Unknown]
  - Intentional product use issue [Unknown]
